FAERS Safety Report 5164208-2 (Version None)
Quarter: 2006Q4

REPORT INFORMATION
  Report Type: 
  Country: None (occurrence: None)
  Receive Date: 20060918
  Receipt Date: 20051018
  Transmission Date: 20070319
  Serious: Yes (Hospitalization, Other)
  Sender: FDA-Public Use
  Company Number: US-JNJFOC-20050804449

PATIENT
  Age: 40 Year
  Sex: Female
  Weight: 69.8539 kg

DRUGS (5)
  1. TOPAMAX [Suspect]
     Indication: EPILEPSY
     Dosage: SEE IMAGE
     Route: 048
     Dates: start: 20050101, end: 20050101
  2. TOPAMAX [Suspect]
     Indication: EPILEPSY
     Dosage: SEE IMAGE
     Route: 048
     Dates: start: 20050101, end: 20050101
  3. TOPAMAX [Suspect]
     Indication: EPILEPSY
     Dosage: SEE IMAGE
     Route: 048
     Dates: end: 20050801
  4. TOPAMAX [Suspect]
     Indication: EPILEPSY
     Dosage: SEE IMAGE
     Route: 048
     Dates: start: 20050301
  5. DILANTIN [Concomitant]

REACTIONS (2)
  - DIZZINESS [None]
  - SINUS BRADYCARDIA [None]
